FAERS Safety Report 9519870 (Version 1)
Quarter: 2013Q3

REPORT INFORMATION
  Report Type: Spontaneous
  Country: US (occurrence: US)
  Receive Date: 20130912
  Receipt Date: 20130912
  Transmission Date: 20140515
  Serious: Yes (Other)
  Sender: FDA-Public Use
  Company Number: US-BAYER-2013-108762

PATIENT
  Age: 30 Year
  Sex: Female

DRUGS (2)
  1. MIRENA [Suspect]
     Indication: CONTRACEPTION
     Dosage: 20 MCG/24HR, CONT
     Route: 015
     Dates: start: 201105
  2. MIRENA [Suspect]
     Indication: MENSTRUAL CYCLE MANAGEMENT

REACTIONS (13)
  - Device dislocation [Not Recovered/Not Resolved]
  - Dysmenorrhoea [None]
  - Weight increased [None]
  - Somnolence [None]
  - Asthenia [None]
  - Back pain [None]
  - Fatigue [None]
  - Anxiety [None]
  - Mood swings [None]
  - Discomfort [None]
  - Abdominal discomfort [None]
  - Menstrual disorder [None]
  - Drug ineffective for unapproved indication [None]
